FAERS Safety Report 9994629 (Version 1)
Quarter: 2014Q1

REPORT INFORMATION
  Report Type: Report from Study
  Country: MX (occurrence: MX)
  Receive Date: 20140311
  Receipt Date: 20140311
  Transmission Date: 20141002
  Serious: Yes (Other)
  Sender: FDA-Public Use
  Company Number: MX-ROCHE-1362133

PATIENT
  Age: 71 Year
  Sex: Male
  Weight: 54 kg

DRUGS (4)
  1. AVASTIN [Suspect]
     Indication: NON-SMALL CELL LUNG CANCER
     Route: 065
  2. CISPLATIN [Concomitant]
     Indication: NON-SMALL CELL LUNG CANCER
  3. PEMETREXED [Concomitant]
     Indication: NON-SMALL CELL LUNG CANCER
  4. DOCETAXEL [Concomitant]

REACTIONS (3)
  - Disease progression [Unknown]
  - Vomiting [Unknown]
  - Diarrhoea [Unknown]
